FAERS Safety Report 20673664 (Version 3)
Quarter: 2022Q2

REPORT INFORMATION
  Report Type: Spontaneous
  Country: US (occurrence: US)
  Receive Date: 20220405
  Receipt Date: 20220513
  Transmission Date: 20220720
  Serious: No
  Sender: FDA-Public Use
  Company Number: US-GLAXOSMITHKLINE-US2022AMR055914

PATIENT
  Sex: Female

DRUGS (2)
  1. ZEJULA [Suspect]
     Active Substance: NIRAPARIB
     Indication: Ovarian cancer
     Dosage: 200 MG, QD
     Dates: end: 20220407
  2. ZEJULA [Suspect]
     Active Substance: NIRAPARIB
     Dosage: 200 MG, QD
     Dates: end: 20220419

REACTIONS (8)
  - Nausea [Unknown]
  - Abdominal discomfort [Unknown]
  - Gastrointestinal motility disorder [Unknown]
  - Pain [Unknown]
  - Platelet count decreased [Unknown]
  - Laboratory test abnormal [Unknown]
  - Blood pressure increased [Recovering/Resolving]
  - Blood pressure diastolic increased [Unknown]
